FAERS Safety Report 4366409-X (Version None)
Quarter: 2004Q2

REPORT INFORMATION
  Report Type: 
  Country: None (occurrence: None)
  Receive Date: 20040527
  Receipt Date: 20040308
  Transmission Date: 20050107
  Serious: Yes (Other)
  Sender: FDA-Public Use
  Company Number: US-BRISTOL-MYERS SQUIBB COMPANY-12527396

PATIENT
  Sex: Male

DRUGS (4)
  1. ERBITUX [Suspect]
     Indication: COLORECTAL CANCER METASTATIC
     Route: 042
  2. BENADRYL [Concomitant]
     Indication: PREMEDICATION
     Dosage: GIEN 30 MIN PRIOR TO ERBITUX
     Route: 042
  3. ANZEMET [Concomitant]
     Indication: PREMEDICATION
     Dosage: GIVEN 30 MIN PRIOR TO ERBITUX
     Route: 042
  4. DECADRON [Concomitant]
     Indication: PREMEDICATION
     Dosage: GIVEN 30 MIN PRIOR TO ERBITUX
     Route: 042

REACTIONS (2)
  - DERMATITIS ACNEIFORM [None]
  - INFUSION RELATED REACTION [None]
